FAERS Safety Report 8843043 (Version 1)
Quarter: 2012Q4

REPORT INFORMATION
  Report Type: 
  Country: GB (occurrence: GB)
  Receive Date: 20121016
  Receipt Date: 20121016
  Transmission Date: 20130627
  Serious: Yes (Hospitalization)
  Sender: FDA-Public Use
  Company Number: GB-VIIV HEALTHCARE LIMITED-B0836304A

PATIENT
  Sex: Female

DRUGS (2)
  1. KIVEXA [Suspect]
     Indication: HIV INFECTION
     Dosage: 1TAB Per day
     Route: 065
     Dates: start: 20120823, end: 20120910
  2. EFAVIRENZ [Concomitant]

REACTIONS (9)
  - Hypersensitivity [Recovered/Resolved]
  - Rash macular [Recovered/Resolved]
  - Tachycardia [Recovered/Resolved]
  - Hyponatraemia [Recovered/Resolved]
  - Pyrexia [Recovered/Resolved]
  - Nausea [Recovered/Resolved]
  - Vomiting [Recovered/Resolved]
  - Inflammatory marker increased [Recovered/Resolved]
  - Normochromic normocytic anaemia [Recovered/Resolved]
